FAERS Safety Report 8464287 (Version 3)
Quarter: 2013Q1

REPORT INFORMATION
  Report Type: Spontaneous
  Country: US (occurrence: US)
  Receive Date: 20120316
  Receipt Date: 20130220
  Transmission Date: 20140127
  Serious: Yes (Hospitalization, Other)
  Sender: FDA-Public Use
  Company Number: US-ASTRAZENECA-2012SE16327

PATIENT
  Age: 41 Year
  Sex: Male
  Weight: 88.5 kg

DRUGS (11)
  1. SYMBICORT PMDI [Suspect]
     Indication: ASTHMA
     Dosage: 2 PUFFS, TWO TIMES A DAY
     Route: 055
  2. NEXIUM [Suspect]
     Indication: GASTROOESOPHAGEAL REFLUX DISEASE
     Route: 048
  3. SEROQUEL [Suspect]
     Indication: POST-TRAUMATIC STRESS DISORDER
     Route: 048
  4. SEROQUEL [Suspect]
     Indication: SLEEP DISORDER
     Route: 048
  5. SEROQUEL [Suspect]
     Indication: POST-TRAUMATIC STRESS DISORDER
     Route: 048
  6. SEROQUEL [Suspect]
     Indication: SLEEP DISORDER
     Route: 048
  7. SEROQUEL [Suspect]
     Indication: POST-TRAUMATIC STRESS DISORDER
     Route: 048
  8. SEROQUEL [Suspect]
     Indication: SLEEP DISORDER
     Route: 048
  9. ZANTAX [Concomitant]
     Indication: POST-TRAUMATIC STRESS DISORDER
     Route: 048
  10. NEUROTIN [Concomitant]
     Indication: POST-TRAUMATIC STRESS DISORDER
     Dosage: MIDEST QD
     Route: 048
  11. PROAIR [Concomitant]
     Indication: ASTHMA
     Dosage: ONE PUFF PRN
     Route: 048

REACTIONS (9)
  - Fall [Unknown]
  - Joint injury [Unknown]
  - Staphylococcal infection [Unknown]
  - Staphylococcal infection [Unknown]
  - Cyst [Unknown]
  - Burning sensation [Unknown]
  - Post procedural swelling [Unknown]
  - Postoperative wound complication [Unknown]
  - Off label use [Unknown]
